FAERS Safety Report 7542588-8 (Version None)
Quarter: 2011Q2

REPORT INFORMATION
  Report Type: 
  Country: None (occurrence: None)
  Receive Date: 20110613
  Receipt Date: 20110609
  Transmission Date: 20111010
  Serious: Yes (Other)
  Sender: FDA-Public Use
  Company Number: US-CEPHALON-2011001987

PATIENT
  Sex: Male
  Weight: 96 kg

DRUGS (1)
  1. TREANDA [Suspect]
     Indication: CHRONIC LYMPHOCYTIC LEUKAEMIA
     Route: 042
     Dates: start: 20110105, end: 20110302

REACTIONS (8)
  - SYNCOPE [None]
  - ASTHENIA [None]
  - VOMITING [None]
  - MALAISE [None]
  - TREMOR [None]
  - HYPERHIDROSIS [None]
  - CHILLS [None]
  - PYREXIA [None]
